FAERS Safety Report 11224912 (Version 2)
Quarter: 2015Q2

REPORT INFORMATION
  Report Type: Spontaneous
  Country: CN (occurrence: CN)
  Receive Date: 20150629
  Receipt Date: 20150630
  Transmission Date: 20150821
  Serious: Yes (Other)
  Sender: FDA-Public Use
  Company Number: CN-BAYER-2015-361890

PATIENT
  Age: 82 Year
  Sex: Male

DRUGS (1)
  1. IOPROMIDE [Suspect]
     Active Substance: IOPROMIDE
     Dosage: UNK, ONCE

REACTIONS (3)
  - Dysphonia [Recovered/Resolved]
  - Tinnitus [Recovered/Resolved]
  - Deafness bilateral [Recovered/Resolved]
